FAERS Safety Report 8557433-1 (Version None)
Quarter: 2012Q3

REPORT INFORMATION
  Report Type: 
  Country: None (occurrence: None)
  Receive Date: 20120801
  Receipt Date: 20120720
  Transmission Date: 20120928
  Serious: Yes (Hospitalization)
  Sender: FDA-Public Use
  Company Number: CH-ELI_LILLY_AND_COMPANY-CH201207001965

PATIENT
  Sex: Female
  Weight: 66 kg

DRUGS (6)
  1. EFFIENT [Suspect]
     Dosage: 10 MG, QD
     Route: 048
     Dates: start: 20110503, end: 20110910
  2. CIPROFLAXACIN [Concomitant]
     Dosage: UNK, UNKNOWN
  3. METRONIDAZOLE [Concomitant]
     Dosage: UNK, UNKNOWN
  4. ASPIRIN [Concomitant]
  5. EFFIENT [Suspect]
     Dosage: 60 MG, QD
     Route: 048
     Dates: start: 20110502, end: 20110502
  6. VANCOMYCIN [Concomitant]
     Dosage: UNK, UNKNOWN
     Route: 048

REACTIONS (4)
  - THROMBOSIS [None]
  - CROHN'S DISEASE [None]
  - CLOSTRIDIUM COLITIS [None]
  - GASTROINTESTINAL HAEMORRHAGE [None]
